FAERS Safety Report 22270688 (Version 1)
Quarter: 2023Q2

REPORT INFORMATION
  Report Type: Spontaneous
  Country: US (occurrence: None)
  Receive Date: 20230428
  Receipt Date: 20230428
  Transmission Date: 20230721
  Serious: Yes (Other)
  Sender: FDA-Public Use
  Company Number: None

PATIENT
  Age: 74 Year
  Sex: Female
  Weight: 63.5 kg

DRUGS (1)
  1. SCOPOLAMINE TRANDERMAL SYSTEM [Suspect]
     Active Substance: SCOPOLAMINE
     Dosage: OTHER QUANTITY : 1 PATHONCE;?FREQUENCY : ONCE;?
     Route: 062

REACTIONS (7)
  - Dysarthria [None]
  - Disorganised speech [None]
  - Memory impairment [None]
  - Hallucination, visual [None]
  - Patient elopement [None]
  - Fall [None]
  - Confusional state [None]
